FAERS Safety Report 9221555 (Version 1)
Quarter: 2013Q2

REPORT INFORMATION
  Report Type: Spontaneous
  Country: US (occurrence: None)
  Receive Date: 20130408
  Receipt Date: 20130408
  Transmission Date: 20140414
  Serious: Yes (Hospitalization)
  Sender: FDA-Public Use
  Company Number: None

PATIENT
  Age: 73 Year
  Sex: Male
  Weight: 72.2 kg

DRUGS (1)
  1. CISPLATIN [Suspect]

REACTIONS (5)
  - Productive cough [None]
  - Asthenia [None]
  - Dyspnoea [None]
  - Dehydration [None]
  - Sputum discoloured [None]
